FAERS Safety Report 12091781 (Version 2)
Quarter: 2016Q1

REPORT INFORMATION
  Report Type: Spontaneous
  Country: US (occurrence: US)
  Receive Date: 20160218
  Receipt Date: 20160308
  Transmission Date: 20160526
  Serious: No
  Sender: FDA-Public Use
  Company Number: US-ASTRAZENECA-2016SE14048

PATIENT
  Age: 20 Year
  Sex: Male

DRUGS (1)
  1. PULMICORT FLEXHALER [Suspect]
     Active Substance: BUDESONIDE
     Dosage: 90 MCG TWO PUFFS TWIVE DAILY
     Route: 055
     Dates: start: 20160113

REACTIONS (2)
  - Asthma [Unknown]
  - Device failure [Unknown]

NARRATIVE: CASE EVENT DATE: 2016
